FAERS Safety Report 17234073 (Version 1)
Quarter: 2020Q1

REPORT INFORMATION
  Report Type: Spontaneous
  Country: US (occurrence: US)
  Receive Date: 20200106
  Receipt Date: 20200106
  Transmission Date: 20200409
  Serious: No
  Sender: FDA-Public Use
  Company Number: US-UCBSA-2014004756

PATIENT
  Sex: Female

DRUGS (4)
  1. METHOTREXATE. [Concomitant]
     Active Substance: METHOTREXATE
     Dosage: MORE FREQUENTLY DURING THE WEEK AND HIGHER DOSE
  2. REMICADE [Concomitant]
     Active Substance: INFLIXIMAB
     Dosage: UNKNOWN DOSE
  3. CIMZIA [Suspect]
     Active Substance: CERTOLIZUMAB PEGOL
     Dosage: UNKNOWN DOSE
  4. HUMIRA [Concomitant]
     Active Substance: ADALIMUMAB
     Dosage: UNKNOWN

REACTIONS (2)
  - Nausea [Unknown]
  - Upper respiratory tract infection [Unknown]
